FAERS Safety Report 8345274-X (Version None)
Quarter: 2012Q2

REPORT INFORMATION
  Report Type: 
  Country: None (occurrence: None)
  Receive Date: 20120508
  Receipt Date: 20120501
  Transmission Date: 20120825
  Serious: Yes (Other)
  Sender: FDA-Public Use
  Company Number: US-BAYER-2010-001654

PATIENT
  Age: 33 Year
  Sex: Female

DRUGS (2)
  1. YASMIN [Suspect]
     Indication: PREMENSTRUAL SYNDROME
     Dosage: UNK
  2. YAZ [Suspect]
     Indication: PREMENSTRUAL SYNDROME
     Dosage: UNK
     Dates: start: 20081101, end: 20090401

REACTIONS (4)
  - DEEP VEIN THROMBOSIS [None]
  - DEPRESSION [None]
  - ANXIETY [None]
  - THROMBOSIS [None]
